FAERS Safety Report 5553314-6 (Version None)
Quarter: 2007Q4

REPORT INFORMATION
  Report Type: 
  Country: None (occurrence: None)
  Receive Date: 20071212
  Receipt Date: 20070712
  Transmission Date: 20080405
  Serious: No
  Sender: FDA-Public Use
  Company Number: US-AMGEN-KDL227864

PATIENT
  Sex: Male

DRUGS (3)
  1. ENBREL [Suspect]
     Indication: RHEUMATOID ARTHRITIS
     Route: 058
     Dates: start: 20030603
  2. ARAVA [Concomitant]
     Route: 048
     Dates: start: 20020823
  3. PREDNISONE [Concomitant]
     Dates: start: 20060207

REACTIONS (6)
  - IMPAIRED HEALING [None]
  - JOINT SWELLING [None]
  - OEDEMA PERIPHERAL [None]
  - PAIN IN EXTREMITY [None]
  - PHOTOSENSITIVITY REACTION [None]
  - SUNBURN [None]
